FAERS Safety Report 6426007-0 (Version None)
Quarter: 2009Q4

REPORT INFORMATION
  Report Type: 
  Country: None (occurrence: None)
  Receive Date: 20091104
  Receipt Date: 20091102
  Transmission Date: 20100525
  Serious: Yes (Other)
  Sender: FDA-Public Use
  Company Number: US-ASTRAZENECA-2007UW06053

PATIENT
  Age: 40 Year
  Sex: Female
  Weight: 85.7 kg

DRUGS (24)
  1. SEROQUEL [Suspect]
     Indication: DEPRESSION
     Route: 048
     Dates: start: 19971001, end: 20020101
  2. SEROQUEL [Suspect]
     Indication: SLEEP DISORDER
     Route: 048
     Dates: start: 19971001, end: 20020101
  3. SEROQUEL [Suspect]
     Dosage: 25 TO 50 MG, FLUCTUATING
     Route: 048
     Dates: start: 20040708
  4. SEROQUEL [Suspect]
     Dosage: 25 TO 50 MG, FLUCTUATING
     Route: 048
     Dates: start: 20040708
  5. THEOPHYLLINE [Concomitant]
     Dates: start: 20020726
  6. FLEXERIL [Concomitant]
     Dosage: AS NEEDED
     Dates: start: 19971208
  7. LORTAB [Concomitant]
     Indication: PAIN
     Dates: start: 20020726
  8. REMERON [Concomitant]
     Dosage: 15 MG TO 30 MG, FLUCTUATING
     Dates: start: 19971208
  9. STELAZINE [Concomitant]
     Dates: start: 19980507
  10. TRAZODONE [Concomitant]
     Dates: start: 19991207
  11. ACTOS [Concomitant]
     Dates: start: 20040522
  12. SYNTHROID [Concomitant]
     Dates: start: 20040522
  13. NEURONTIN [Concomitant]
     Dates: start: 20040522
  14. LIPITOR [Concomitant]
     Dosage: 10 MG TO 20 MG, FLUCTUATING
     Dates: start: 20020726
  15. LIPITOR [Concomitant]
     Route: 048
     Dates: start: 20040629
  16. LEXAPRO [Concomitant]
     Dates: start: 20040522
  17. LEXAPRO [Concomitant]
     Route: 048
     Dates: start: 20040629
  18. ATIVAN [Concomitant]
     Dates: start: 20040708
  19. ATIVAN [Concomitant]
     Route: 048
     Dates: start: 20040629
  20. METOPROLOL [Concomitant]
     Dates: start: 20060420
  21. SINGULAIR [Concomitant]
     Dates: start: 20060420
  22. ZOLOFT [Concomitant]
     Dates: start: 20060420
  23. AVANDIA [Concomitant]
     Dates: start: 20041007
  24. THORAZINE [Concomitant]

REACTIONS (4)
  - BLADDER DISORDER [None]
  - DIABETIC NEUROPATHY [None]
  - NEUROPATHY PERIPHERAL [None]
  - TYPE 2 DIABETES MELLITUS [None]
